FAERS Safety Report 19069702 (Version 3)
Quarter: 2021Q2

REPORT INFORMATION
  Report Type: Report from Study
  Country: BE (occurrence: BE)
  Receive Date: 20210329
  Receipt Date: 20210611
  Transmission Date: 20210717
  Serious: Yes (Other)
  Sender: FDA-Public Use
  Company Number: BE-BAYER-2021-079743

PATIENT
  Age: 55 Year
  Sex: Male

DRUGS (3)
  1. LAROTRECTINIB [Suspect]
     Active Substance: LAROTRECTINIB
     Dosage: 50 MG, BID
     Dates: start: 20201104, end: 20201213
  2. LAROTRECTINIB [Suspect]
     Active Substance: LAROTRECTINIB
     Dosage: 75 MG, BID
     Dates: start: 20201021, end: 20201029
  3. LAROTRECTINIB [Suspect]
     Active Substance: LAROTRECTINIB
     Dosage: 100 MG, BID
     Dates: start: 20200928, end: 20201011

REACTIONS (3)
  - Polyneuropathy [Unknown]
  - Arthralgia [Recovering/Resolving]
  - Disease progression [None]

NARRATIVE: CASE EVENT DATE: 20200930
